FAERS Safety Report 12610422 (Version 2)
Quarter: 2016Q3

REPORT INFORMATION
  Report Type: Spontaneous
  Country: FR (occurrence: FR)
  Receive Date: 20160801
  Receipt Date: 20160914
  Transmission Date: 20161109
  Serious: Yes (Death, Other)
  Sender: FDA-Public Use
  Company Number: FR-009507513-1607FRA011810

PATIENT
  Age: 60 Year
  Sex: Female
  Weight: 64 kg

DRUGS (14)
  1. WELLVONE [Concomitant]
     Active Substance: ATOVAQUONE
     Indication: PROPHYLAXIS
     Dosage: 750 MG, BID
     Dates: start: 201601
  2. PREDNISONE. [Concomitant]
     Active Substance: PREDNISONE
     Dosage: 70 MG - 50 MG - 0
     Dates: start: 20160609, end: 20160829
  3. DERMOVAL (BETAMETHASONE VALERATE) [Concomitant]
     Active Substance: BETAMETHASONE VALERATE
     Dosage: 2 DF, QD
     Dates: end: 201608
  4. XANAX [Concomitant]
     Active Substance: ALPRAZOLAM
     Dosage: 0.25 MG, TID
     Route: 048
     Dates: end: 201608
  5. NOXAFIL [Suspect]
     Active Substance: POSACONAZOLE
     Indication: ANTIFUNGAL PROPHYLAXIS
     Dosage: 300 MG, QD
     Route: 048
     Dates: start: 20160609, end: 20160711
  6. NIVESTIM [Concomitant]
     Active Substance: FILGRASTIM
     Dosage: 3 MG, TIW
     Route: 058
     Dates: end: 201608
  7. ORACILLINE (PENICILLIN V BENZATHINE) [Concomitant]
     Active Substance: PENICILLIN V BENZATHINE
     Indication: PROPHYLAXIS
     Dosage: 1410 DF, BID
     Dates: start: 201601
  8. PRIMPERAN [Concomitant]
     Active Substance: METOCLOPRAMIDE HYDROCHLORIDE
     Indication: ANTIEMETIC SUPPORTIVE CARE
     Dosage: 10 MG, TID
     Dates: start: 201601
  9. ROVALCYTE [Concomitant]
     Active Substance: VALGANCICLOVIR HYDROCHLORIDE
     Indication: CYTOMEGALOVIRUS INFECTION
     Dosage: 900 MG, BID
     Dates: start: 20160624, end: 20160724
  10. DELURSAN [Concomitant]
     Active Substance: URSODIOL
     Dosage: 1 DF, TID
     Route: 048
     Dates: end: 201608
  11. ENTOCORT [Concomitant]
     Active Substance: BUDESONIDE
     Dosage: 3 MG, TID
     Dates: start: 20160609, end: 201608
  12. INEXIUM (ESOMEPRAZOLE SODIUM) [Concomitant]
     Active Substance: ESOMEPRAZOLE SODIUM
     Dosage: 40 MG, QD
     Route: 048
     Dates: end: 20160829
  13. ACETAMINOPHEN. [Concomitant]
     Active Substance: ACETAMINOPHEN
     Dosage: 2 G, QD
  14. SPASFON [Concomitant]
     Active Substance: PHLOROGLUCINOL
     Dosage: 1 DF, TID
     Route: 048
     Dates: end: 201608

REACTIONS (5)
  - Pneumocystis jirovecii pneumonia [Fatal]
  - Graft versus host disease in gastrointestinal tract [Unknown]
  - Graft versus host disease in liver [Unknown]
  - Hepatitis [Recovering/Resolving]
  - Graft versus host disease in skin [Unknown]

NARRATIVE: CASE EVENT DATE: 20160711
